FAERS Safety Report 4375790-7 (Version None)
Quarter: 2004Q2

REPORT INFORMATION
  Report Type: 
  Country: None (occurrence: None)
  Receive Date: 20040611
  Receipt Date: 20040505
  Transmission Date: 20050107
  Serious: Yes (Death)
  Sender: FDA-Public Use
  Company Number: PHHO2004ES06472

PATIENT
  Age: 64 Year
  Sex: Female

DRUGS (1)
  1. NEORAL [Suspect]
     Indication: LIVER TRANSPLANT
     Dosage: 100 MG / DAY
     Route: 048
     Dates: start: 20011222, end: 20040311

REACTIONS (1)
  - LIVER TRANSPLANT REJECTION [None]
